FAERS Safety Report 20104975 (Version 1)
Quarter: 2021Q4

REPORT INFORMATION
  Report Type: Spontaneous
  Country: JP (occurrence: JP)
  Receive Date: 20211124
  Receipt Date: 20211124
  Transmission Date: 20220303
  Serious: Yes (Other)
  Sender: FDA-Public Use
  Company Number: JP-SUN PHARMACEUTICAL INDUSTRIES LTD-2021RR-318522

PATIENT
  Age: 63 Year
  Sex: Male

DRUGS (5)
  1. MEROPENEM [Suspect]
     Active Substance: MEROPENEM
     Indication: Adenocarcinoma gastric
     Dosage: UNK
     Route: 065
  2. CAPECITABINE [Suspect]
     Active Substance: CAPECITABINE
     Indication: Adenocarcinoma gastric
     Dosage: 3600 MILLIGRAM, DAILY, FROM DAYS 1 TO 14
     Route: 065
  3. CISPLATIN [Suspect]
     Active Substance: CISPLATIN
     Indication: Adenocarcinoma gastric
     Dosage: 80 MILLIGRAM/SQ. METER ON DAY 1
     Route: 065
  4. TRASTUZUMAB [Suspect]
     Active Substance: TRASTUZUMAB
     Indication: Adenocarcinoma gastric
     Dosage: 8 MILLIGRAM/SQ. METER, ON DAY 1
     Route: 065
  5. MICAFUNGIN [Suspect]
     Active Substance: MICAFUNGIN
     Indication: Product used for unknown indication
     Dosage: UNK
     Route: 065

REACTIONS (8)
  - Diarrhoea [Unknown]
  - Stomatitis [Unknown]
  - Renal disorder [Unknown]
  - General physical health deterioration [Unknown]
  - Dysphagia [Unknown]
  - Febrile neutropenia [Unknown]
  - Candida infection [Unknown]
  - Toxicity to various agents [Unknown]
